FAERS Safety Report 12437096 (Version 1)
Quarter: 2016Q2

REPORT INFORMATION
  Report Type: Spontaneous
  Country: US (occurrence: US)
  Receive Date: 20160606
  Receipt Date: 20160606
  Transmission Date: 20160815
  Serious: No
  Sender: FDA-Public Use
  Company Number: US-DRREDDYS-USA/USA/15/0054767

PATIENT
  Age: 2 Month
  Sex: Male

DRUGS (1)
  1. AMOXICILLIN 400 MG/ 5 ML POWDER FOR ORAL SUSPENSION [Suspect]
     Active Substance: AMOXICILLIN
     Indication: PRODUCT USED FOR UNKNOWN INDICATION
     Dosage: 2 ML PER DOSE
     Route: 048

REACTIONS (2)
  - No adverse event [Unknown]
  - Product preparation error [Unknown]
